FAERS Safety Report 23334765 (Version 2)
Quarter: 2024Q2

REPORT INFORMATION
  Report Type: Other
  Country: IE (occurrence: IE)
  Receive Date: 20231224
  Receipt Date: 20240531
  Transmission Date: 20240716
  Serious: Yes (Disabling, Other)
  Sender: FDA-Public Use
  Company Number: IE-ASTELLAS-2023EU005498

PATIENT
  Age: 81 Year
  Sex: Male

DRUGS (1)
  1. MIRABEGRON [Suspect]
     Active Substance: MIRABEGRON
     Indication: Urinary tract disorder
     Dosage: 25 MG, ONCE DAILY (ONE TABLET)
     Route: 048
     Dates: start: 20200803, end: 20231019

REACTIONS (6)
  - Swelling of eyelid [Recovering/Resolving]
  - Dermatitis [Recovering/Resolving]
  - Purpura [Recovering/Resolving]
  - Constipation [Recovering/Resolving]
  - Asthma [Recovered/Resolved]
  - Dizziness [Recovering/Resolving]

NARRATIVE: CASE EVENT DATE: 20210901
